FAERS Safety Report 5117041-1 (Version None)
Quarter: 2006Q3

REPORT INFORMATION
  Report Type: 
  Country: None (occurrence: None)
  Receive Date: 20060925
  Receipt Date: 20060911
  Transmission Date: 20061208
  Serious: Yes (Hospitalization, Other)
  Sender: FDA-Public Use
  Company Number: 2006106215

PATIENT
  Age: 79 Year
  Sex: Female
  Weight: 37 kg

DRUGS (6)
  1. DETRUSITOL SR (TOLTERODINE) [Suspect]
     Indication: MICTURITION URGENCY
     Dosage: 4 MG, ORAL
     Route: 048
     Dates: start: 20060809, end: 20060817
  2. PAXIL [Suspect]
     Indication: ANXIETY DISORDER
     Dosage: 10 MG (10 MG, 1 IN 1 D), ORAL
     Route: 048
     Dates: start: 20060808
  3. RIZE (CLOTIAZEPAM) [Concomitant]
  4. MARYL (GLIMEPIRIDE) [Concomitant]
  5. BLOPRESS (CANDESARTAN CILEXETIL) [Concomitant]
  6. LASIX [Concomitant]

REACTIONS (3)
  - ANOREXIA [None]
  - FOREIGN BODY TRAUMA [None]
  - MENTAL DISORDER [None]
